FAERS Safety Report 13578373 (Version 3)
Quarter: 2018Q1

REPORT INFORMATION
  Report Type: Spontaneous
  Country: US (occurrence: US)
  Receive Date: 20170524
  Receipt Date: 20180118
  Transmission Date: 20180508
  Serious: Yes (Life-Threatening, Other)
  Sender: FDA-Public Use
  Company Number: US-REGENERON PHARMACEUTICALS, INC.-2017-15881

PATIENT

DRUGS (7)
  1. EYLEA [Suspect]
     Active Substance: AFLIBERCEPT
     Dosage: 2 MG, EVERY 1-2 MONTHS LEFT EYE
     Route: 031
     Dates: start: 20161115, end: 20161115
  2. EYLEA [Suspect]
     Active Substance: AFLIBERCEPT
     Dosage: 2 MG EVERY 1-2 MONTHS LEFT EYE
     Route: 031
     Dates: start: 20170404, end: 20170404
  3. EYLEA [Suspect]
     Active Substance: AFLIBERCEPT
     Indication: NEOVASCULAR AGE-RELATED MACULAR DEGENERATION
     Dosage: 2 MG EVERY 1-2 MONTHS LEFT EYE
     Route: 031
     Dates: start: 20160902, end: 20170516
  4. EYLEA [Suspect]
     Active Substance: AFLIBERCEPT
     Dosage: 2 MG EVERY 1-2 MONTHS LEFT EYE
     Route: 031
     Dates: start: 20170516, end: 20170516
  5. EYLEA [Suspect]
     Active Substance: AFLIBERCEPT
     Dosage: 2 MG, EVERY 1-2 MONTHS LEFT EYE
     Route: 031
     Dates: start: 20170214, end: 20170214
  6. EYLEA [Suspect]
     Active Substance: AFLIBERCEPT
     Indication: NEOVASCULAR AGE-RELATED MACULAR DEGENERATION
     Dosage: 2 MG, EVERY 1-2 MONTHS LEFT EYE
     Route: 031
     Dates: start: 20161004, end: 20161004
  7. EYLEA [Suspect]
     Active Substance: AFLIBERCEPT
     Dosage: 2 MG, EVERY 1-2 MONTHS LEFT EYE
     Route: 031
     Dates: start: 20170110, end: 20170110

REACTIONS (14)
  - Rash [Recovered/Resolved]
  - Drug eruption [Recovered/Resolved]
  - Nausea [Unknown]
  - Dizziness [Not Recovered/Not Resolved]
  - Delirium [Not Recovered/Not Resolved]
  - Pruritus generalised [Not Recovered/Not Resolved]
  - Swelling face [Recovered/Resolved]
  - Wrong technique in product usage process [Unknown]
  - Peripheral swelling [Unknown]
  - Irritability [Not Recovered/Not Resolved]
  - Pyrexia [Recovered/Resolved]
  - Skin exfoliation [Recovering/Resolving]
  - Pain in jaw [Recovered/Resolved]
  - Drug dose omission [Unknown]

NARRATIVE: CASE EVENT DATE: 2017
